FAERS Safety Report 9455410 (Version 2)
Quarter: 2013Q3

REPORT INFORMATION
  Report Type: Report from Study
  Country: BR (occurrence: BR)
  Receive Date: 20130813
  Receipt Date: 20130927
  Transmission Date: 20140515
  Serious: Yes (Other)
  Sender: FDA-Public Use
  Company Number: PHHY2013BR086372

PATIENT
  Age: 59 Year
  Sex: Male

DRUGS (13)
  1. MYCOPHENOLIC ACID [Suspect]
     Indication: IMMUNOSUPPRESSION
     Dosage: 1440 MG, DAILY
     Route: 048
     Dates: start: 20080430
  2. PREDNISONE [Suspect]
     Indication: IMMUNOSUPPRESSION
     Dosage: 7.5 MG, UNK
     Dates: start: 20080503
  3. PREDNISONE [Suspect]
     Dosage: 7.5 MG, DAILY
  4. TACROLIMUS [Suspect]
     Indication: IMMUNOSUPPRESSION
     Dosage: 0.15 MG/KG, UNK
     Route: 048
     Dates: start: 20080501, end: 20100914
  5. ANTITHYMOCYTE IMMUNOGLOBULIN [Suspect]
     Dosage: 20 MG, UNK
     Route: 042
     Dates: start: 20080430
  6. ANTITHYMOCYTE IMMUNOGLOBULIN [Suspect]
     Dosage: 20 MG, UNK
     Route: 042
     Dates: start: 20080504
  7. OMEPRAZOLE [Concomitant]
     Indication: GASTRIC DISORDER
     Dosage: 20 MG, DAILY
     Route: 048
     Dates: start: 2003
  8. AAS [Concomitant]
     Indication: ANTIPLATELET THERAPY
     Dosage: 100 MG, DAILY
     Route: 048
     Dates: start: 2003
  9. AMLODIPINE [Concomitant]
     Indication: HYPERTENSION
     Dosage: 5 MG, Q12H
     Dates: start: 2005
  10. LOSARTAN [Concomitant]
     Indication: HYPOTENSION
     Dosage: 50 MG, Q12H
     Dates: start: 201008
  11. SIMVASTATIN [Concomitant]
     Indication: HYPERLIPIDAEMIA
     Dosage: 40 MG, DAILY
     Route: 048
     Dates: start: 2000
  12. CARVEDILOL [Concomitant]
     Indication: HYPERTENSION
     Dosage: 25 MG, Q12H
     Dates: start: 2005
  13. DIAZEPAM [Concomitant]
     Indication: SLEEP DISORDER
     Dosage: 10 MG, DAILY
     Dates: start: 2000

REACTIONS (4)
  - Nephropathy toxic [Recovered/Resolved]
  - Thrombotic microangiopathy [Recovered/Resolved]
  - Urine protein/creatinine ratio increased [Recovered/Resolved]
  - Proteinuria [Recovered/Resolved]
